FAERS Safety Report 8037155-6 (Version None)
Quarter: 2012Q1

REPORT INFORMATION
  Report Type: 
  Country: None (occurrence: None)
  Receive Date: 20120106
  Receipt Date: 20111229
  Transmission Date: 20120608
  Serious: Yes (Other)
  Sender: FDA-Public Use
  Company Number: 1000026616

PATIENT
  Sex: Female

DRUGS (3)
  1. SEROQUEL [Suspect]
  2. ZOLOFT [Suspect]
  3. NAMENDA [Suspect]

REACTIONS (4)
  - MUSCULOSKELETAL STIFFNESS [None]
  - ASTHENIA [None]
  - MOVEMENT DISORDER [None]
  - TREMOR [None]
